FAERS Safety Report 9760816 (Version 1)
Quarter: 2013Q4

REPORT INFORMATION
  Report Type: Spontaneous
  Country: US (occurrence: US)
  Receive Date: 20131216
  Receipt Date: 20131216
  Transmission Date: 20140711
  Serious: No
  Sender: FDA-Public Use
  Company Number: US-BIOGENIDEC-2013BI107086

PATIENT
  Sex: Female

DRUGS (9)
  1. TECFIDERA [Suspect]
     Indication: MULTIPLE SCLEROSIS
     Route: 048
     Dates: start: 20131007
  2. TECFIDERA [Suspect]
     Indication: MULTIPLE SCLEROSIS
     Route: 048
     Dates: start: 20131007
  3. ATIVAN [Concomitant]
  4. CELEXA [Concomitant]
  5. MAXALT [Concomitant]
  6. PROMETHAZINE HCL [Concomitant]
  7. SYNTHROID [Concomitant]
  8. TERAZOSIN HCL [Concomitant]
  9. TOPAMAX [Concomitant]

REACTIONS (3)
  - Back pain [Unknown]
  - Nausea [Unknown]
  - Vomiting [Unknown]
